FAERS Safety Report 7840080-4 (Version None)
Quarter: 2011Q4

REPORT INFORMATION
  Report Type: 
  Country: None (occurrence: None)
  Receive Date: 20111025
  Receipt Date: 20111013
  Transmission Date: 20120403
  Serious: Yes (Other)
  Sender: FDA-Public Use
  Company Number: ES-RANBAXY-2009RR-27044

PATIENT
  Age: 43 Year
  Sex: Female

DRUGS (10)
  1. INDINIVIR SULFATE [Suspect]
     Indication: HIV INFECTION
     Dosage: UNK
     Route: 065
  2. ZIDOVUDINE [Suspect]
     Indication: HIV INFECTION
     Dosage: UNK
     Route: 065
  3. RITONAVIR [Suspect]
     Indication: HIV INFECTION
     Dosage: UNK
     Route: 065
  4. DIDANOSINE [Suspect]
     Indication: HIV INFECTION
     Dosage: UNK
     Route: 065
  5. SAQUINAVIR [Suspect]
     Indication: HIV INFECTION
     Dosage: UNK
     Route: 065
  6. NEVIRAPINE [Suspect]
     Indication: HIV INFECTION
     Dosage: UNK
     Route: 065
  7. LOPINAVIR [Suspect]
     Indication: HIV INFECTION
     Dosage: UNK
     Route: 065
  8. LAMIVUDINE [Suspect]
     Indication: HIV INFECTION
     Dosage: UNK
     Route: 065
  9. STAVUDINE [Suspect]
     Indication: HIV INFECTION
     Dosage: UNK
     Route: 065
  10. TENOFOVIR DISOPROXIL FUMARATE [Suspect]
     Indication: HIV INFECTION
     Dosage: UNK
     Route: 065

REACTIONS (1)
  - PORTAL HYPERTENSION [None]
